FAERS Safety Report 8021754-1 (Version None)
Quarter: 2012Q1

REPORT INFORMATION
  Report Type: 
  Country: None (occurrence: None)
  Receive Date: 20120104
  Receipt Date: 20120102
  Transmission Date: 20120608
  Serious: Yes (Hospitalization, Other)
  Sender: FDA-Public Use
  Company Number: PHHY2012FR000527

PATIENT
  Age: 35 Year
  Sex: Male

DRUGS (3)
  1. GLEEVEC [Suspect]
     Indication: CHRONIC MYELOID LEUKAEMIA
     Dosage: 600 MG, DAILY
  2. GLEEVEC [Suspect]
     Dosage: 400 MG, DAILY
  3. CYTARABINE [Concomitant]

REACTIONS (2)
  - DYSPNOEA EXERTIONAL [None]
  - BLOOD CREATININE INCREASED [None]
